FAERS Safety Report 22146073 (Version 2)
Quarter: 2023Q2

REPORT INFORMATION
  Report Type: Report from Study
  Country: ZA (occurrence: ZA)
  Receive Date: 20230328
  Receipt Date: 20230509
  Transmission Date: 20230721
  Serious: Yes (Death, Other)
  Sender: FDA-Public Use
  Company Number: ZA-BAYER-2023A039551

PATIENT
  Sex: Female

DRUGS (15)
  1. EYLEA [Suspect]
     Active Substance: AFLIBERCEPT
     Indication: Neovascular age-related macular degeneration
     Dosage: 1 DF, ONCE, SOLUTION FOR INJECTION
     Route: 031
     Dates: start: 20210413, end: 20210413
  2. EYLEA [Suspect]
     Active Substance: AFLIBERCEPT
     Dosage: 1 DF, ONCE, SOLUTION FOR INJECTION
     Route: 031
     Dates: start: 20210511, end: 20210511
  3. EYLEA [Suspect]
     Active Substance: AFLIBERCEPT
     Dosage: 1 DF, ONCE, SOLUTION FOR INJECTION
     Route: 031
     Dates: start: 20210624, end: 20210624
  4. EYLEA [Suspect]
     Active Substance: AFLIBERCEPT
     Dosage: 1 DF, ONCE, SOLUTION FOR INJECTION
     Route: 031
     Dates: start: 20210810, end: 20210810
  5. EYLEA [Suspect]
     Active Substance: AFLIBERCEPT
     Dosage: 1 DF, ONCE, SOLUTION FOR INJECTION
     Route: 031
     Dates: start: 20210928, end: 20210928
  6. EYLEA [Suspect]
     Active Substance: AFLIBERCEPT
     Dosage: 1 DF, ONCE, SOLUTION FOR INJECTION
     Route: 031
     Dates: start: 20211102, end: 20211102
  7. EYLEA [Suspect]
     Active Substance: AFLIBERCEPT
     Dosage: 1 DF, ONCE, SOLUTION FOR INJECTION
     Route: 031
     Dates: start: 20211214, end: 20211214
  8. EYLEA [Suspect]
     Active Substance: AFLIBERCEPT
     Dosage: 1 DF, ONCE, SOLUTION FOR INJECTION
     Route: 031
     Dates: start: 20220125, end: 20220125
  9. EYLEA [Suspect]
     Active Substance: AFLIBERCEPT
     Dosage: 1 DF, ONCE, SOLUTION FOR INJECTION
     Route: 031
     Dates: start: 20220308, end: 20220308
  10. EYLEA [Suspect]
     Active Substance: AFLIBERCEPT
     Dosage: 1 DF, ONCE, SOLUTION FOR INJECTION
     Route: 031
     Dates: start: 20220517, end: 20220517
  11. EYLEA [Suspect]
     Active Substance: AFLIBERCEPT
     Dosage: 1 DF, ONCE, SOLUTION FOR INJECTION
     Route: 031
     Dates: start: 20220628, end: 20220628
  12. EYLEA [Suspect]
     Active Substance: AFLIBERCEPT
     Dosage: 1 DF, ONCE, SOLUTION FOR INJECTION
     Route: 031
     Dates: start: 20220823, end: 20220823
  13. EYLEA [Suspect]
     Active Substance: AFLIBERCEPT
     Dosage: 1 DF, ONCE, SOLUTION FOR INJECTION
     Route: 031
     Dates: start: 20221011, end: 20221011
  14. EYLEA [Suspect]
     Active Substance: AFLIBERCEPT
     Dosage: 1 DF, ONCE, SOLUTION FOR INJECTION
     Route: 031
     Dates: start: 20221213, end: 20221213
  15. EYLEA [Suspect]
     Active Substance: AFLIBERCEPT
     Dosage: 1 DF, ONCE, SOLUTION FOR INJECTION
     Route: 031
     Dates: start: 20230221, end: 20230221

REACTIONS (1)
  - Death [Fatal]

NARRATIVE: CASE EVENT DATE: 20230320
